FAERS Safety Report 7539718-0 (Version None)
Quarter: 2011Q2

REPORT INFORMATION
  Report Type: 
  Country: None (occurrence: None)
  Receive Date: 20110610
  Receipt Date: 20110531
  Transmission Date: 20111010
  Serious: Yes (Other)
  Sender: FDA-Public Use
  Company Number: US-JNJFOC-20110601658

PATIENT
  Age: 37 Year
  Sex: Male
  Weight: 124.74 kg

DRUGS (2)
  1. PRECISE EXTRA STRENGTH PAIN RELIEVING CREAM [Suspect]
     Indication: MUSCLE STRAIN
     Dosage: DIME-SIZED AMOUNT
     Route: 061
     Dates: start: 20110530, end: 20110530
  2. MULTI-VITAMINS [Concomitant]
     Indication: GENERAL PHYSICAL CONDITION
     Route: 065

REACTIONS (4)
  - APPLICATION SITE VESICLES [None]
  - APPLICATION SITE ERYTHEMA [None]
  - CHEMICAL INJURY [None]
  - APPLICATION SITE SWELLING [None]
